FAERS Safety Report 8516267-4 (Version None)
Quarter: 2012Q3

REPORT INFORMATION
  Report Type: 
  Country: None (occurrence: None)
  Receive Date: 20120717
  Receipt Date: 20120702
  Transmission Date: 20120928
  Serious: Yes (Other)
  Sender: FDA-Public Use
  Company Number: CHPA2012US014790

PATIENT
  Age: 67 Year
  Sex: Female

DRUGS (1)
  1. BENEFIBER SUGAR FREE [Suspect]
     Indication: PAIN PROPHYLAXIS
     Dosage: 1 TABLET PER DAY
     Route: 048
     Dates: start: 20120101

REACTIONS (5)
  - CATARACT [None]
  - DISEASE RECURRENCE [None]
  - WEIGHT DECREASED [None]
  - THERAPEUTIC RESPONSE UNEXPECTED [None]
  - OFF LABEL USE [None]
